FAERS Safety Report 4335104-5 (Version None)
Quarter: 2004Q2

REPORT INFORMATION
  Report Type: 
  Country: None (occurrence: None)
  Receive Date: 20040408
  Receipt Date: 20040318
  Transmission Date: 20050107
  Serious: Yes (Other)
  Sender: FDA-Public Use
  Company Number: PHBS2004BR03791

PATIENT
  Sex: Female

DRUGS (1)
  1. CODATEN [Suspect]
     Indication: BACK PAIN
     Route: 048
     Dates: start: 20040318, end: 20040318

REACTIONS (6)
  - DRY MOUTH [None]
  - DYSSTASIA [None]
  - RETCHING [None]
  - SPEECH DISORDER [None]
  - TREMOR [None]
  - VOMITING [None]
